FAERS Safety Report 5532714-4 (Version None)
Quarter: 2007Q4

REPORT INFORMATION
  Report Type: 
  Country: None (occurrence: None)
  Receive Date: 20071119
  Receipt Date: 20070816
  Transmission Date: 20080405
  Serious: No
  Sender: FDA-Public Use
  Company Number: TPA2007A01756

PATIENT

DRUGS (2)
  1. ROZEREM [Suspect]
     Dosage: PER ORAL
     Route: 048
  2. GEODON [Concomitant]

REACTIONS (2)
  - MANIA [None]
  - PSYCHOMOTOR HYPERACTIVITY [None]
